FAERS Safety Report 7424780 (Version 4)
Quarter: 2014Q4

REPORT INFORMATION
  Report Type: Report from Study
  Country: DE (occurrence: DE)
  Receive Date: 20100618
  Receipt Date: 20141110
  Transmission Date: 20150529
  Serious: Yes (Other)
  Sender: FDA-Public Use
  Company Number: DE-ROCHE-709169

PATIENT
  Age: 60 Year
  Sex: Male
  Weight: 79.5 kg

DRUGS (4)
  1. INTERFERON ALFA-2A [Suspect]
     Active Substance: INTERFERON ALFA-2A
     Indication: METASTATIC RENAL CELL CARCINOMA
     Route: 058
     Dates: start: 20100429, end: 20100705
  2. INTERFERON ALFA-2A [Suspect]
     Active Substance: INTERFERON ALFA-2A
     Route: 058
     Dates: start: 20100513, end: 20100705
  3. BENURON [Concomitant]
     Indication: PYREXIA
     Dosage: AS NEEDED
     Route: 065
  4. BEVACIZUMAB [Suspect]
     Active Substance: BEVACIZUMAB
     Indication: METASTATIC RENAL CELL CARCINOMA
     Dosage: 10 MG/KG; 810 (UNIT NOT REPORTED)
     Route: 042
     Dates: start: 20100429, end: 20100623

REACTIONS (5)
  - Retinal exudates [Unknown]
  - Retinal exudates [Recovering/Resolving]
  - Retinal haemorrhage [Unknown]
  - Impaired healing [Unknown]
  - Eye haemorrhage [Unknown]

NARRATIVE: CASE EVENT DATE: 20100504
